FAERS Safety Report 17355174 (Version 1)
Quarter: 2020Q1

REPORT INFORMATION
  Report Type: Report from Study
  Country: US (occurrence: US)
  Receive Date: 20200131
  Receipt Date: 20200131
  Transmission Date: 20200409
  Serious: Yes (Other)
  Sender: FDA-Public Use
  Company Number: US-TAKEDA-2019TUS004542

PATIENT
  Age: 77 Year
  Sex: Male

DRUGS (3)
  1. PONATINIB [Suspect]
     Active Substance: PONATINIB
     Dosage: 15 MILLIGRAM, QD
     Route: 048
  2. PONATINIB [Suspect]
     Active Substance: PONATINIB
     Dosage: 30 MILLIGRAM, QD
     Route: 048
  3. PONATINIB [Suspect]
     Active Substance: PONATINIB
     Indication: ACUTE LYMPHOCYTIC LEUKAEMIA
     Dosage: 15 MILLIGRAM, QD
     Route: 048
     Dates: start: 201901

REACTIONS (9)
  - Chest pain [Recovered/Resolved]
  - Back pain [Recovered/Resolved]
  - Hyperaesthesia [Unknown]
  - Acute lymphocytic leukaemia recurrent [Unknown]
  - Abdominal pain [Recovered/Resolved]
  - Product dose omission [Unknown]
  - Abdominal pain upper [Recovered/Resolved]
  - Fluid retention [Unknown]
  - Blood pressure increased [Recovered/Resolved]

NARRATIVE: CASE EVENT DATE: 20190429
